FAERS Safety Report 9006620 (Version 1)
Quarter: 2012Q4

REPORT INFORMATION
  Report Type: Spontaneous
  Country: GB (occurrence: None)
  Receive Date: 20121227
  Receipt Date: 20121227
  Transmission Date: 20130627
  Serious: Yes (Other)
  Sender: FDA-Public Use
  Company Number: 2012MA014268

PATIENT
  Age: 39 Year
  Sex: Female

DRUGS (5)
  1. METOCLOPRAMIDE [Suspect]
     Indication: NAUSEA
     Route: 048
     Dates: start: 201112, end: 20121015
  2. METOCLOPRAMIDE [Suspect]
     Indication: ENDOMETRIOSIS
     Route: 048
     Dates: start: 201112, end: 20121015
  3. OESTROGEN [Concomitant]
  4. PROGESTERONE [Concomitant]
  5. PROVERA [Concomitant]

REACTIONS (6)
  - Nausea [None]
  - Insomnia [None]
  - Paraesthesia [None]
  - Hypoaesthesia [None]
  - Tremor [None]
  - Feeling abnormal [None]
